FAERS Safety Report 5002892-4 (Version None)
Quarter: 2006Q2

REPORT INFORMATION
  Report Type: 
  Country: None (occurrence: None)
  Receive Date: 20060512
  Receipt Date: 20060505
  Transmission Date: 20061013
  Serious: Yes (Hospitalization)
  Sender: FDA-Public Use
  Company Number: GXBR2006US01021

PATIENT
  Age: 50 Year
  Sex: Male
  Weight: 81.6 kg

DRUGS (2)
  1. RIBAVIRIN [Suspect]
     Indication: HEPATITIS C
     Dosage: 600 MG, BID, ORAL
     Route: 048
     Dates: start: 20050901, end: 20060220
  2. PEG-INTRON [Suspect]
     Indication: HEPATITIS C
     Dosage: QW,
     Dates: start: 20050901, end: 20060220

REACTIONS (4)
  - BLOOD PRESSURE INCREASED [None]
  - CEREBRAL INFARCTION [None]
  - CEREBROVASCULAR ACCIDENT [None]
  - URTICARIA [None]
